FAERS Safety Report 19580708 (Version 2)
Quarter: 2021Q3

REPORT INFORMATION
  Report Type: Spontaneous
  Country: KR (occurrence: KR)
  Receive Date: 20210719
  Receipt Date: 20210812
  Transmission Date: 20211014
  Serious: Yes (Hospitalization, Other)
  Sender: FDA-Public Use
  Company Number: KR-ALXN-A202108076

PATIENT
  Age: 48 Year
  Sex: Male

DRUGS (4)
  1. METHYLON                           /00049601/ [Concomitant]
     Active Substance: METHYLPREDNISOLONE
     Indication: HYPOAESTHESIA
     Dosage: 1 TABLET ONCE A DAY
     Route: 065
  2. SOLIRIS [Suspect]
     Active Substance: ECULIZUMAB
     Indication: PAROXYSMAL NOCTURNAL HAEMOGLOBINURIA
     Dosage: UNK
     Route: 065
  3. METHYLON                           /00049601/ [Concomitant]
     Active Substance: METHYLPREDNISOLONE
     Indication: HAEMATURIA
     Dosage: 1 TABLET BID, FOR SEVERAL YEARS BUT STOPPED WHEN PATINET WAS HOSPITALIZED
  4. METHYLON                           /00049601/ [Concomitant]
     Active Substance: METHYLPREDNISOLONE
     Indication: MUSCULOSKELETAL CHEST PAIN
     Dosage: 2 TABLETS ONCE A DAY
     Route: 065

REACTIONS (9)
  - Nausea [Unknown]
  - Haematuria [Recovered/Resolved]
  - Septic shock [Recovered/Resolved]
  - Hypoaesthesia [Recovered/Resolved]
  - Varicose vein [Unknown]
  - Urinary tract infection [Unknown]
  - Vomiting [Unknown]
  - Musculoskeletal chest pain [Recovered/Resolved]
  - General physical health deterioration [Not Recovered/Not Resolved]

NARRATIVE: CASE EVENT DATE: 2021
